FAERS Safety Report 18739017 (Version 2)
Quarter: 2021Q1

REPORT INFORMATION
  Report Type: Other
  Country: AU (occurrence: AU)
  Receive Date: 20210114
  Receipt Date: 20210203
  Transmission Date: 20210419
  Serious: Yes (Other)
  Sender: FDA-Public Use
  Company Number: AU-ROCHE-2748560

PATIENT
  Age: 71 Year
  Sex: Female

DRUGS (1)
  1. ALECTINIB. [Suspect]
     Active Substance: ALECTINIB
     Indication: LUNG ADENOCARCINOMA
     Route: 065

REACTIONS (3)
  - Spherocytic anaemia [Unknown]
  - Anaemia [Not Recovered/Not Resolved]
  - Haemolysis [Unknown]
